FAERS Safety Report 25253680 (Version 1)
Quarter: 2025Q2

REPORT INFORMATION
  Report Type: Spontaneous
  Country: US (occurrence: US)
  Receive Date: 20250430
  Receipt Date: 20250430
  Transmission Date: 20250717
  Serious: No
  Sender: ROCHE
  Company Number: US-ROCHE-10000264923

PATIENT
  Sex: Female

DRUGS (1)
  1. XOLAIR [Suspect]
     Active Substance: OMALIZUMAB
     Indication: Idiopathic urticaria
     Dosage: ONGOING
     Route: 058
     Dates: start: 202202

REACTIONS (11)
  - Chest pain [Unknown]
  - Disturbance in attention [Unknown]
  - Anxiety [Unknown]
  - Agitation [Unknown]
  - Dizziness [Unknown]
  - Arthralgia [Unknown]
  - Musculoskeletal pain [Unknown]
  - Myalgia [Unknown]
  - Mental disorder [Unknown]
  - Disturbance in attention [Unknown]
  - Breast disorder [Unknown]
